FAERS Safety Report 16115986 (Version 1)
Quarter: 2019Q1

REPORT INFORMATION
  Report Type: Spontaneous
  Country: JP (occurrence: JP)
  Receive Date: 20190326
  Receipt Date: 20190326
  Transmission Date: 20190418
  Serious: Yes (Other)
  Sender: FDA-Public Use
  Company Number: JP-TEVA-2019-JP-001678J

PATIENT
  Sex: Male

DRUGS (2)
  1. RIZE [Suspect]
     Active Substance: CLOTIAZEPAM
     Route: 048
  2. CONSTAN 0.4MG TABLETS [Suspect]
     Active Substance: ALPRAZOLAM
     Indication: PRODUCT USED FOR UNKNOWN INDICATION
     Route: 048

REACTIONS (2)
  - Physical deconditioning [Unknown]
  - Arrhythmia [Recovering/Resolving]
